FAERS Safety Report 12088997 (Version 1)
Quarter: 2016Q1

REPORT INFORMATION
  Report Type: Spontaneous
  Country: VE (occurrence: VE)
  Receive Date: 20160218
  Receipt Date: 20160218
  Transmission Date: 20160526
  Serious: Yes (Other)
  Sender: FDA-Public Use
  Company Number: PHHY2016VE021176

PATIENT
  Sex: Male

DRUGS (3)
  1. STALEVO [Suspect]
     Active Substance: CARBIDOPA\ENTACAPONE\LEVODOPA
     Indication: PARKINSON^S DISEASE
     Dosage: 50 MG, QD
     Route: 048
  2. STALEVO [Suspect]
     Active Substance: CARBIDOPA\ENTACAPONE\LEVODOPA
     Dosage: 4 DF, QD
     Route: 048
  3. FESTAL [Concomitant]
     Indication: DYSPEPSIA
     Dosage: 0.192 G, QD
     Route: 065

REACTIONS (6)
  - Malaise [Unknown]
  - Arthropathy [Unknown]
  - Hypokinesia [Unknown]
  - Dysstasia [Unknown]
  - Tremor [Unknown]
  - Mobility decreased [Unknown]
